FAERS Safety Report 8811783 (Version 1)
Quarter: 2012Q4

REPORT INFORMATION
  Report Type: 
  Country: US (occurrence: US)
  Receive Date: 20120927
  Receipt Date: 20120927
  Transmission Date: 20130627
  Serious: Yes (Other)
  Sender: FDA-Public Use
  Company Number: US-ASTRAZENECA-2012SE72740

PATIENT
  Age: 79 Year
  Sex: Female

DRUGS (3)
  1. TOPROL XL [Suspect]
     Route: 048
     Dates: start: 20110423
  2. REVLIMID [Suspect]
     Indication: MULTIPLE MYELOMA
     Dosage: 1 DF, DAILY, FOR 21 DAYS WITH 7 DAYS OFF
     Route: 048
     Dates: start: 20100128
  3. COUMADIN [Suspect]
     Route: 065
     Dates: start: 20110822

REACTIONS (24)
  - Rectal haemorrhage [Unknown]
  - Pulmonary embolism [Unknown]
  - Thrombosis [Unknown]
  - Diarrhoea [Unknown]
  - Dyspnoea [Unknown]
  - Epistaxis [Unknown]
  - Angina pectoris [Unknown]
  - Neuropathy peripheral [Unknown]
  - Phlebitis [Unknown]
  - Hypothyroidism [Unknown]
  - Purpura [Unknown]
  - Feeling cold [Unknown]
  - Nasopharyngitis [Unknown]
  - Dysphonia [Unknown]
  - Muscle spasms [Unknown]
  - Insomnia [Unknown]
  - Chest discomfort [Unknown]
  - Peripheral coldness [Unknown]
  - Oedema peripheral [Unknown]
  - Dizziness [Unknown]
  - Hypotension [Unknown]
  - Hyperhidrosis [Unknown]
  - Fatigue [Unknown]
  - Neck pain [Unknown]
